FAERS Safety Report 16148769 (Version 1)
Quarter: 2019Q2

REPORT INFORMATION
  Report Type: Report from Study
  Country: CA (occurrence: CA)
  Receive Date: 20190402
  Receipt Date: 20190402
  Transmission Date: 20190711
  Serious: Yes (Hospitalization)
  Sender: FDA-Public Use
  Company Number: CA-JNJFOC-20190213204

PATIENT
  Age: 51 Year
  Sex: Female
  Weight: 72.57 kg

DRUGS (3)
  1. REMICADE [Suspect]
     Active Substance: INFLIXIMAB
     Indication: COLITIS ULCERATIVE
     Dosage: STRENGTH = 100 MG
     Route: 042
     Dates: start: 20150623
  2. REMICADE [Suspect]
     Active Substance: INFLIXIMAB
     Indication: COLITIS ULCERATIVE
     Route: 042
     Dates: start: 20100525
  3. SOLU-MEDROL [Concomitant]
     Active Substance: METHYLPREDNISOLONE SODIUM SUCCINATE
     Route: 065

REACTIONS (6)
  - Escherichia infection [Unknown]
  - Colitis ulcerative [Not Recovered/Not Resolved]
  - Listeriosis [Unknown]
  - Pneumonia [Unknown]
  - Surgery [Unknown]
  - Upper respiratory tract infection [Recovering/Resolving]

NARRATIVE: CASE EVENT DATE: 2019
